FAERS Safety Report 16857629 (Version 1)
Quarter: 2019Q3

REPORT INFORMATION
  Report Type: Spontaneous
  Country: GB (occurrence: GB)
  Receive Date: 20190926
  Receipt Date: 20190926
  Transmission Date: 20191005
  Serious: Yes (Death, Hospitalization, Other)
  Sender: FDA-Public Use
  Company Number: GB-JNJFOC-20190925604

PATIENT
  Age: 62 Year
  Sex: Male

DRUGS (1)
  1. IMBRUVICA [Suspect]
     Active Substance: IBRUTINIB
     Indication: WALDENSTROM^S MACROGLOBULINAEMIA
     Route: 048
     Dates: start: 20170915

REACTIONS (4)
  - Pneumonia cryptococcal [Unknown]
  - Waldenstrom^s macroglobulinaemia [Fatal]
  - Pneumonia aspiration [Unknown]
  - Pulmonary sepsis [Fatal]

NARRATIVE: CASE EVENT DATE: 20171022
